FAERS Safety Report 22610017 (Version 1)
Quarter: 2023Q2

REPORT INFORMATION
  Report Type: Spontaneous
  Country: US (occurrence: US)
  Receive Date: 20230616
  Receipt Date: 20230616
  Transmission Date: 20230722
  Serious: No
  Sender: FDA-Public Use
  Company Number: US-LEO Pharma-346512

PATIENT
  Sex: Male

DRUGS (13)
  1. Nifedipine E TB2 [Concomitant]
     Indication: Product used for unknown indication
     Dosage: DOSAGE : 90 MG
  2. ATENOLOL [Concomitant]
     Active Substance: ATENOLOL
     Indication: Product used for unknown indication
     Dosage: DOSAGE: 100 MG
  3. Folic Acid Tab [Concomitant]
     Indication: Product used for unknown indication
     Dosage: DOSAGE : 1 MG
  4. Jardiance Tab [Concomitant]
     Indication: Product used for unknown indication
     Dosage: DOSAGE : 25 MG
  5. ROSUVASTATIN [Concomitant]
     Active Substance: ROSUVASTATIN
     Indication: Product used for unknown indication
     Dosage: DOSAGE : 20 MG
  6. Losartan POT Tab [Concomitant]
     Indication: Product used for unknown indication
     Dosage: DOSAGE : 100 MG
  7. Amsulosin H Cap [Concomitant]
     Indication: Product used for unknown indication
     Dosage: DOSAGE : 0.4 MG
  8. OZEMPIC [Concomitant]
     Active Substance: SEMAGLUTIDE
     Indication: Product used for unknown indication
     Dosage: DOSAGE : 0.2 SOP 2 MG/1.5M
  9. Clobetasol P CRE [Concomitant]
     Indication: Product used for unknown indication
     Dosage: DOSAGE : 0.05%
  10. ADBRY [Suspect]
     Active Substance: TRALOKINUMAB-LDRM
     Indication: Dermatitis atopic
     Dosage: EVERY TWO WEEKS STARTING ON DAY 15
     Route: 058
  11. Fenofibrate cap [Concomitant]
     Indication: Product used for unknown indication
     Dosage: DOSAGE : 134 MG
  12. Metformin HC Tab [Concomitant]
     Indication: Product used for unknown indication
     Dosage: DOSAGE : 1000 MG
  13. METHOTREXATE [Concomitant]
     Active Substance: METHOTREXATE
     Indication: Product used for unknown indication
     Dosage: DOSAGE : 2.5 MG

REACTIONS (1)
  - Drug ineffective [Unknown]
